FAERS Safety Report 9166813 (Version 1)
Quarter: 2012Q4

REPORT INFORMATION
  Report Type: 
  Country: US (occurrence: US)
  Receive Date: 20121101
  Receipt Date: 20121101
  Transmission Date: 20130627
  Serious: Yes (Other)
  Sender: FDA-Public Use
  Company Number: US-RB-045971-12

PATIENT
  Age: 51 Year
  Sex: Male

DRUGS (1)
  1. MUCINEX MAXIMUM STRENGTH [Suspect]
     Indication: PRODUCT USED FOR UNKNOWN INDICATION
     Route: 048
     Dates: start: 20121022

REACTIONS (4)
  - Swollen tongue [Not Recovered/Not Resolved]
  - Lip swelling [Not Recovered/Not Resolved]
  - Ageusia [Not Recovered/Not Resolved]
  - Vomiting [Not Recovered/Not Resolved]
